FAERS Safety Report 23082705 (Version 1)
Quarter: 2023Q4

REPORT INFORMATION
  Report Type: Spontaneous
  Country: RU (occurrence: RU)
  Receive Date: 20231019
  Receipt Date: 20231019
  Transmission Date: 20240109
  Serious: Yes (Hospitalization)
  Sender: FDA-Public Use
  Company Number: RU-drreddys-LIT/RUS/23/0179786

PATIENT
  Age: 65 Year
  Sex: Male

DRUGS (14)
  1. KETOROLAC [Suspect]
     Active Substance: KETOROLAC TROMETHAMINE
     Indication: Central pain syndrome
  2. OMEPRAZOLE [Suspect]
     Active Substance: OMEPRAZOLE
     Indication: Central pain syndrome
  3. KETOPROFEN [Suspect]
     Active Substance: KETOPROFEN
     Indication: Central pain syndrome
  4. TAPENTADOL [Suspect]
     Active Substance: TAPENTADOL
     Indication: Central pain syndrome
     Dates: start: 201908
  5. TAPENTADOL [Suspect]
     Active Substance: TAPENTADOL
  6. PREGABALIN [Suspect]
     Active Substance: PREGABALIN
     Indication: Central pain syndrome
     Dates: start: 201908
  7. PREGABALIN [Suspect]
     Active Substance: PREGABALIN
     Dosage: 300 MG/DAY
  8. FENTANYL [Suspect]
     Active Substance: FENTANYL
     Indication: Central pain syndrome
     Dosage: 25-50 MCG/HOUR
     Route: 062
  9. MORPHINE [Suspect]
     Active Substance: MORPHINE
     Indication: Central pain syndrome
  10. MORPHINE SULFATE [Suspect]
     Active Substance: MORPHINE SULFATE
     Indication: Central pain syndrome
     Dosage: 40-90 MG/DAY
  11. MORPHINE SULFATE [Suspect]
     Active Substance: MORPHINE SULFATE
     Dosage: INCREASED DOSE TO 120 MG/DAY
  12. MORPHINE SULFATE [Suspect]
     Active Substance: MORPHINE SULFATE
  13. DEXAMETHASONE [Suspect]
     Active Substance: DEXAMETHASONE
     Indication: Central pain syndrome
     Route: 030
  14. DEXAMETHASONE [Suspect]
     Active Substance: DEXAMETHASONE
     Route: 030

REACTIONS (3)
  - Pain [Recovered/Resolved]
  - Drug ineffective [Unknown]
  - Product use in unapproved indication [Unknown]
